FAERS Safety Report 13625853 (Version 1)
Quarter: 2017Q2

REPORT INFORMATION
  Report Type: Report from Study
  Country: US (occurrence: US)
  Receive Date: 20170608
  Receipt Date: 20170608
  Transmission Date: 20170830
  Serious: Yes (Other)
  Sender: FDA-Public Use
  Company Number: US-GILEAD-2017-0276701

PATIENT
  Age: 64 Year
  Sex: Female

DRUGS (2)
  1. DILTIAZEM. [Concomitant]
     Active Substance: DILTIAZEM
  2. AMBRISENTAN [Suspect]
     Active Substance: AMBRISENTAN
     Indication: PRODUCT USED FOR UNKNOWN INDICATION
     Dosage: 10 MG, QD
     Route: 065

REACTIONS (1)
  - Lower respiratory tract congestion [Not Recovered/Not Resolved]
